FAERS Safety Report 8115397-9 (Version None)
Quarter: 2012Q1

REPORT INFORMATION
  Report Type: 
  Country: None (occurrence: None)
  Receive Date: 20120206
  Receipt Date: 20120206
  Transmission Date: 20120608
  Serious: Yes (Hospitalization)
  Sender: FDA-Public Use
  Company Number: None

PATIENT
  Age: 55 Year
  Sex: Male
  Weight: 88.45 kg

DRUGS (1)
  1. ACIPHEX [Suspect]
     Indication: GASTROOESOPHAGEAL REFLUX DISEASE
     Dosage: 20.0 MG
     Route: 048
     Dates: start: 20020501, end: 20100610

REACTIONS (4)
  - MUSCLE TWITCHING [None]
  - TOOTHACHE [None]
  - CONVULSION [None]
  - TREMOR [None]
